FAERS Safety Report 16628628 (Version 6)
Quarter: 2021Q1

REPORT INFORMATION
  Report Type: Other
  Country: AT (occurrence: AT)
  Receive Date: 20190725
  Receipt Date: 20210315
  Transmission Date: 20210419
  Serious: Yes (Death)
  Sender: FDA-Public Use
  Company Number: AT-ROCHE-2353612

PATIENT
  Age: 62 Year
  Sex: Female
  Weight: 130.8 kg

DRUGS (15)
  1. EMEND [Concomitant]
     Active Substance: APREPITANT
     Dates: start: 20190306, end: 20190707
  2. TRASTUZUMAB. [Suspect]
     Active Substance: TRASTUZUMAB
     Indication: HER2 POSITIVE BREAST CANCER
     Route: 042
     Dates: start: 20190306, end: 20190619
  3. FORLAX [Concomitant]
     Active Substance: POLYETHYLENE GLYCOL 4000
     Dates: start: 20190306, end: 20190707
  4. PERTUZUMAB. [Suspect]
     Active Substance: PERTUZUMAB
     Indication: HER2 POSITIVE BREAST CANCER
     Route: 042
     Dates: start: 20190306, end: 20190619
  5. ZOFRAN [Concomitant]
     Active Substance: ONDANSETRON HYDROCHLORIDE
     Dates: start: 20190306, end: 20190707
  6. DIBONDRIN [Concomitant]
     Active Substance: DIPHENHYDRAMINE HYDROCHLORIDE
     Dates: start: 20190306, end: 20190707
  7. MEXALEN [Concomitant]
     Active Substance: ACETAMINOPHEN
     Dates: start: 20190306, end: 20190707
  8. FORTECORTIN [Concomitant]
     Active Substance: DEXAMETHASONE
     Dosage: ONGOING = CHECKED
     Dates: start: 20190306
  9. PANTOLOC [Concomitant]
     Active Substance: PANTOPRAZOLE SODIUM
     Dates: start: 20190306, end: 20190707
  10. ZOFRAN [Concomitant]
     Active Substance: ONDANSETRON HYDROCHLORIDE
     Dates: start: 20190306, end: 20190707
  11. FORTECORTIN [Concomitant]
     Active Substance: DEXAMETHASONE
     Dates: start: 20190306, end: 20190707
  12. ZOFRAN [Concomitant]
     Active Substance: ONDANSETRON HYDROCHLORIDE
     Dosage: ONGOING = CHECKED
     Dates: start: 20190306
  13. DOCETAXEL. [Suspect]
     Active Substance: DOCETAXEL
     Indication: HER2 POSITIVE BREAST CANCER
     Route: 042
     Dates: start: 20190306, end: 20190528
  14. ENALAPRIL/HCT [Concomitant]
     Dates: end: 20190707
  15. DAFLON [Concomitant]
     Dates: end: 20190707

REACTIONS (2)
  - Device related infection [Fatal]
  - Pneumonia [Fatal]

NARRATIVE: CASE EVENT DATE: 20190628
